FAERS Safety Report 8780427 (Version 1)
Quarter: 2012Q4

REPORT INFORMATION
  Report Type: Spontaneous
  Country: US (occurrence: None)
  Receive Date: 20120905
  Receipt Date: 20120905
  Transmission Date: 20130627
  Serious: Yes (Life-Threatening, Hospitalization)
  Sender: FDA-Public Use
  Company Number: None

PATIENT
  Age: 44 Year
  Sex: Female
  Weight: 129.28 kg

DRUGS (2)
  1. JUNEL 1/20 [Suspect]
     Indication: OVARIAN CYST
     Dosage: 1 tablet once a day by mouth
     Route: 048
     Dates: start: 20120624, end: 20120713
  2. JUNEL 1/20 [Suspect]
     Indication: PERIMENOPAUSE
     Dosage: 1 tablet once a day by mouth
     Route: 048
     Dates: start: 20120624, end: 20120713

REACTIONS (1)
  - Embolism [None]
